FAERS Safety Report 9537675 (Version 1)
Quarter: 2013Q3

REPORT INFORMATION
  Report Type: Spontaneous
  Country: US (occurrence: US)
  Receive Date: 20130919
  Receipt Date: 20130919
  Transmission Date: 20140515
  Serious: Yes (Other)
  Sender: FDA-Public Use
  Company Number: US-ELI_LILLY_AND_COMPANY-US201309002805

PATIENT
  Sex: Female

DRUGS (9)
  1. EVISTA [Suspect]
     Indication: OSTEOPENIA
     Dosage: 60 MG, QD
  2. EVISTA [Suspect]
     Indication: NEOPLASM PROPHYLAXIS
  3. ATORVASTATIN [Concomitant]
  4. ENALAPRIL [Concomitant]
  5. ACIPHEX [Concomitant]
  6. RANITIDINE [Concomitant]
  7. NORTRIPTYLINE [Concomitant]
  8. DIAZEPAM [Concomitant]
  9. ZOLPIDEM [Concomitant]

REACTIONS (2)
  - Osteonecrosis [Unknown]
  - Gastric disorder [Unknown]
